FAERS Safety Report 6838206-4 (Version None)
Quarter: 2010Q3

REPORT INFORMATION
  Report Type: 
  Country: None (occurrence: None)
  Receive Date: 20100713
  Receipt Date: 20070606
  Transmission Date: 20110219
  Serious: No
  Sender: FDA-Public Use
  Company Number: US-PFIZER INC-2007048042

PATIENT
  Sex: Female
  Weight: 66.8 kg

DRUGS (9)
  1. CHANTIX [Suspect]
     Indication: SMOKING CESSATION THERAPY
     Dates: start: 20070523, end: 20070605
  2. PLAVIX [Concomitant]
  3. COREG [Concomitant]
  4. PROTONIX [Concomitant]
  5. ACETYLSALICYLIC ACID [Concomitant]
  6. FERROUS SULFATE [Concomitant]
  7. ZOCOR [Concomitant]
  8. VYTORIN [Concomitant]
  9. PLACEBO [Concomitant]

REACTIONS (6)
  - ABNORMAL DREAMS [None]
  - DIZZINESS [None]
  - HEADACHE [None]
  - NAUSEA [None]
  - VERTIGO [None]
  - VOMITING [None]
